FAERS Safety Report 12455896 (Version 2)
Quarter: 2016Q3

REPORT INFORMATION
  Report Type: Spontaneous
  Country: FR (occurrence: FR)
  Receive Date: 20160610
  Receipt Date: 20160715
  Transmission Date: 20161109
  Serious: Yes (Hospitalization)
  Sender: FDA-Public Use
  Company Number: FR-AMGEN-FRASP2016073113

PATIENT
  Age: 77 Year
  Sex: Female
  Weight: 63 kg

DRUGS (7)
  1. CORTANCYL [Concomitant]
     Active Substance: PREDNISONE
     Dosage: 7 MG, UNK
  2. LEXOMIL [Concomitant]
     Active Substance: BROMAZEPAM
     Dosage: UNK
  3. OMEPRAZOLE. [Concomitant]
     Active Substance: OMEPRAZOLE
     Dosage: UNK
  4. NISISCO [Concomitant]
     Active Substance: HYDROCHLOROTHIAZIDE\VALSARTAN
     Dosage: 80 DF, UNK
  5. PRAVASTATIN. [Concomitant]
     Active Substance: PRAVASTATIN
     Dosage: UNK
  6. PROLIA [Suspect]
     Active Substance: DENOSUMAB
     Indication: OSTEOPOROSIS POSTMENOPAUSAL
     Dosage: 60 MG, UNK
     Route: 065
     Dates: start: 201402
  7. KARDEGIC [Concomitant]
     Active Substance: ASPIRIN LYSINE
     Dosage: UNK

REACTIONS (4)
  - Anxiety [Unknown]
  - Interstitial lung disease [Not Recovered/Not Resolved]
  - Confusional state [Unknown]
  - Hypocapnia [Unknown]

NARRATIVE: CASE EVENT DATE: 20160401
